FAERS Safety Report 4854218-4 (Version None)
Quarter: 2005Q4

REPORT INFORMATION
  Report Type: 
  Country: None (occurrence: None)
  Receive Date: 20051207
  Receipt Date: 20050919
  Transmission Date: 20060501
  Serious: Yes (Other)
  Sender: FDA-Public Use
  Company Number: 2005BH000635

PATIENT
  Age: 54 Year
  Sex: Male

DRUGS (1)
  1. TISSEEL VH KIT [Suspect]
     Indication: PLASTIC SURGERY TO THE FACE
     Dates: start: 20050224, end: 20050224

REACTIONS (2)
  - SCAR [None]
  - SEROMA [None]
